FAERS Safety Report 6190613-1 (Version None)
Quarter: 2009Q2

REPORT INFORMATION
  Report Type: 
  Country: None (occurrence: None)
  Receive Date: 20090514
  Receipt Date: 20090328
  Transmission Date: 20091009
  Serious: Yes (Other)
  Sender: FDA-Public Use
  Company Number: US-BRISTOL-MYERS SQUIBB COMPANY-14552632

PATIENT
  Age: 74 Year
  Sex: Female

DRUGS (9)
  1. IXEMPRA KIT [Suspect]
     Indication: BREAST CANCER METASTATIC
     Dosage: 1 DF = FEW DROPS. WAS TO RECEIVE 75MG (40MG/M2), BUT RECEIVED ONLY FEW DROPS
     Route: 042
     Dates: start: 20090319, end: 20090319
  2. ZOFRAN [Concomitant]
     Indication: PREMEDICATION
     Route: 042
     Dates: start: 20090319
  3. DEXAMETHASONE 4MG TAB [Concomitant]
     Indication: PREMEDICATION
     Route: 042
     Dates: start: 20090319
  4. SODIUM CHLORIDE [Concomitant]
     Indication: PREMEDICATION
     Route: 042
     Dates: start: 20090319
  5. LEVOTHROID [Concomitant]
  6. CELEXA [Concomitant]
     Dosage: 1DF=40-60MG
  7. ATENOLOL [Concomitant]
  8. VITAMIN D [Concomitant]
  9. MULTI-VITAMIN [Concomitant]

REACTIONS (2)
  - DYSPNOEA [None]
  - FLUSHING [None]
